FAERS Safety Report 25283728 (Version 2)
Quarter: 2025Q2

REPORT INFORMATION
  Report Type: Spontaneous
  Country: IL (occurrence: IL)
  Receive Date: 20250508
  Receipt Date: 20250616
  Transmission Date: 20250717
  Serious: Yes (Other)
  Sender: TEVA
  Company Number: IL-TEVA-VS-3328417

PATIENT
  Age: 75 Year
  Sex: Female

DRUGS (13)
  1. BISACODYL [Suspect]
     Active Substance: BISACODYL
     Indication: Constipation
     Dosage: 3-4 TABLETS/DAY
     Route: 065
  2. BISACODYL [Suspect]
     Active Substance: BISACODYL
     Indication: Constipation
     Route: 065
  3. BISACODYL [Suspect]
     Active Substance: BISACODYL
     Indication: Constipation
     Dosage: SELF-PRESCRIBING 10?TABLETS EVERY EVENING/ REGULARLY TAKING TEN TABLETS OF BISACODYL DAILY FOR SE...
     Route: 065
  4. PREGABALIN [Concomitant]
     Active Substance: PREGABALIN
     Indication: Product used for unknown indication
     Route: 065
  5. ATORVASTATIN [Concomitant]
     Active Substance: ATORVASTATIN
     Indication: Hyperlipidaemia
     Route: 065
  6. ACETAMINOPHEN [Concomitant]
     Active Substance: ACETAMINOPHEN
     Indication: Back pain
     Route: 065
  7. ESOMEPRAZOLE [Concomitant]
     Active Substance: ESOMEPRAZOLE
     Indication: Product used for unknown indication
     Route: 065
  8. BROTIZOLAM [Concomitant]
     Active Substance: BROTIZOLAM
     Indication: Product used for unknown indication
     Route: 065
  9. ZOLPIDEM [Concomitant]
     Active Substance: ZOLPIDEM TARTRATE
     Indication: Product used for unknown indication
     Route: 065
  10. LOSARTAN [Suspect]
     Active Substance: LOSARTAN
     Indication: Hypertension
     Route: 065
  11. AMLODIPINE [Suspect]
     Active Substance: AMLODIPINE BESYLATE
     Indication: Hypertension
     Route: 065
  12. TRAMADOL [Concomitant]
     Active Substance: TRAMADOL
     Indication: Back pain
     Route: 065
  13. EZETIMIBE [Concomitant]
     Active Substance: EZETIMIBE
     Indication: Hyperlipidaemia
     Route: 065

REACTIONS (12)
  - Intentional product misuse [Unknown]
  - Hyperaldosteronism [Recovering/Resolving]
  - Hypotension [Recovered/Resolved]
  - Chronic kidney disease [Recovering/Resolving]
  - Blood sodium decreased [Recovering/Resolving]
  - Hyperuricaemia [Recovering/Resolving]
  - Acute kidney injury [Recovering/Resolving]
  - Malabsorption [Recovering/Resolving]
  - Hypertension [Recovered/Resolved]
  - Oedema peripheral [Recovered/Resolved]
  - Blood potassium abnormal [Recovering/Resolving]
  - Hypovolaemia [Recovering/Resolving]
